FAERS Safety Report 11204668 (Version 3)
Quarter: 2020Q4

REPORT INFORMATION
  Report Type: Spontaneous
  Country: CH (occurrence: CH)
  Receive Date: 20150622
  Receipt Date: 20201211
  Transmission Date: 20210113
  Serious: Yes (Life-Threatening, Other)
  Sender: FDA-Public Use
  Company Number: PHHY2015CH073985

PATIENT
  Age: 27 Year
  Sex: Female

DRUGS (8)
  1. VOTUBIA [Suspect]
     Active Substance: EVEROLIMUS
     Indication: ANGIOMYOLIPOMA
  2. VOTUBIA [Suspect]
     Active Substance: EVEROLIMUS
     Indication: SKIN DISORDER
  3. VOTUBIA [Suspect]
     Active Substance: EVEROLIMUS
     Indication: SEIZURE
  4. LAMOTRIGINE. [Concomitant]
     Active Substance: LAMOTRIGINE
     Indication: EPILEPSY
     Dosage: 40 MG, QD (DAILY)
     Route: 048
     Dates: start: 2001
  5. VOTUBIA [Suspect]
     Active Substance: EVEROLIMUS
     Indication: TUBEROUS SCLEROSIS COMPLEX
     Dosage: 10 MG, QD (DAILY)
     Route: 048
     Dates: start: 201209
  6. VOTUBIA [Suspect]
     Active Substance: EVEROLIMUS
     Indication: INTELLECTUAL DISABILITY
  7. VOTUBIA [Suspect]
     Active Substance: EVEROLIMUS
     Indication: ASTROCYTOMA
  8. TOPIRAMATE. [Concomitant]
     Active Substance: TOPIRAMATE
     Indication: EPILEPSY
     Dosage: 400 MG, QD (DAILY)
     Route: 048
     Dates: start: 2005

REACTIONS (6)
  - Coagulation factor VIII level increased [Unknown]
  - Blood creatinine increased [Unknown]
  - Ammonia increased [Unknown]
  - Fibrin D dimer increased [Unknown]
  - Cerebrovascular accident [Unknown]
  - Hemiparesis [Unknown]

NARRATIVE: CASE EVENT DATE: 20141123
